FAERS Safety Report 5282942-0 (Version None)
Quarter: 2007Q2

REPORT INFORMATION
  Report Type: 
  Country: None (occurrence: None)
  Receive Date: 20070402
  Receipt Date: 20070320
  Transmission Date: 20071010
  Serious: Yes (Hospitalization)
  Sender: FDA-Public Use
  Company Number: PHBS2007AR05131

PATIENT
  Age: 36 Year
  Sex: Female

DRUGS (1)
  1. CLOZAPINE [Suspect]
     Indication: SCHIZOPHRENIA
     Dates: start: 20030101

REACTIONS (3)
  - ABDOMINAL DISCOMFORT [None]
  - HYSTEROSALPINGO-OOPHORECTOMY [None]
  - OVARIAN CANCER [None]
